FAERS Safety Report 5658880-8 (Version None)
Quarter: 2008Q1

REPORT INFORMATION
  Report Type: 
  Country: None (occurrence: None)
  Receive Date: 20080310
  Receipt Date: 20070503
  Transmission Date: 20080703
  Serious: No
  Sender: FDA-Public Use
  Company Number: US-BAYER-200711396BCC

PATIENT
  Age: 37 Year
  Sex: Male
  Weight: 84 kg

DRUGS (2)
  1. ALEVE [Suspect]
     Indication: HEADACHE
     Route: 048
  2. ASPIRIN [Suspect]
     Indication: HEADACHE
     Dosage: AS USED: 325 MG  UNIT DOSE: 325 MG
     Route: 048
     Dates: start: 20070301, end: 20070426

REACTIONS (1)
  - HEADACHE [None]
